FAERS Safety Report 4766068-8 (Version None)
Quarter: 2005Q3

REPORT INFORMATION
  Report Type: 
  Country: None (occurrence: None)
  Receive Date: 20050908
  Receipt Date: 20050823
  Transmission Date: 20060218
  Serious: Yes (Hospitalization, Other)
  Sender: FDA-Public Use
  Company Number: 2005BI015931

PATIENT
  Age: 69 Year
  Sex: Female

DRUGS (1)
  1. AVONEX [Suspect]
     Indication: MULTIPLE SCLEROSIS
     Dosage: 30 UG; QW; IM
     Route: 030
     Dates: start: 20020823

REACTIONS (5)
  - COUGH [None]
  - CYSTOPEXY [None]
  - NERVE COMPRESSION [None]
  - SUTURE RELATED COMPLICATION [None]
  - THYROID GLAND CANCER [None]
